FAERS Safety Report 20578211 (Version 1)
Quarter: 2022Q1

REPORT INFORMATION
  Report Type: Spontaneous
  Country: US (occurrence: None)
  Receive Date: 20220310
  Receipt Date: 20220310
  Transmission Date: 20220423
  Serious: Yes (unspecified)
  Sender: FDA-Public Use
  Company Number: None

PATIENT
  Age: 90 Year
  Sex: Male
  Weight: 96.2 kg

DRUGS (1)
  1. FERRIC DERISOMALTOSE [Suspect]
     Active Substance: FERRIC DERISOMALTOSE
     Indication: Anaemia
     Dosage: FREQUENCY : ONCE;?
     Route: 041
     Dates: start: 20220307

REACTIONS (4)
  - Unresponsive to stimuli [None]
  - Pulse absent [None]
  - Moaning [None]
  - Infusion related reaction [None]

NARRATIVE: CASE EVENT DATE: 20220307
